FAERS Safety Report 8080795-9 (Version None)
Quarter: 2012Q1

REPORT INFORMATION
  Report Type: 
  Country: None (occurrence: None)
  Receive Date: 20120130
  Receipt Date: 20120124
  Transmission Date: 20120608
  Serious: Yes (Death, Hospitalization)
  Sender: FDA-Public Use
  Company Number: JP-JNJFOC-20110903859

PATIENT
  Sex: Male
  Weight: 104 kg

DRUGS (40)
  1. RISPERDAL CONSTA [Suspect]
     Indication: SCHIZOPHRENIA
     Route: 030
     Dates: end: 20110831
  2. RISPERIDONE [Suspect]
     Route: 048
     Dates: start: 20000725, end: 20000802
  3. ZOTEPINE [Suspect]
     Route: 048
     Dates: start: 20110512, end: 20110615
  4. VALPROATE SODIUM [Concomitant]
     Route: 048
  5. RISPERIDONE [Suspect]
     Route: 048
     Dates: start: 20090625, end: 20090708
  6. ZOTEPINE [Suspect]
     Route: 048
     Dates: start: 20090528, end: 20100323
  7. LITHIUM CARBONATE [Concomitant]
     Route: 048
     Dates: start: 20090820, end: 20090823
  8. LORAZEPAM [Concomitant]
     Route: 048
  9. RISPERDAL CONSTA [Suspect]
     Route: 030
     Dates: start: 20110901, end: 20110901
  10. RISPERIDONE [Suspect]
     Route: 048
     Dates: start: 20000713, end: 20000724
  11. ZOTEPINE [Suspect]
     Route: 048
     Dates: start: 20100324, end: 20100501
  12. ZOTEPINE [Suspect]
     Route: 048
     Dates: start: 20081204, end: 20090527
  13. VALPROATE SODIUM [Concomitant]
     Route: 048
     Dates: start: 20080807, end: 20110905
  14. LITHIUM CARBONATE [Concomitant]
     Route: 048
     Dates: start: 20090817, end: 20090819
  15. AKIRIDEN [Concomitant]
     Route: 048
     Dates: end: 20110905
  16. RISPERIDONE [Suspect]
     Route: 048
     Dates: start: 20020108, end: 20021209
  17. RISPERIDONE [Suspect]
     Route: 048
     Dates: start: 20081009, end: 20081204
  18. RISPERIDONE [Suspect]
     Route: 048
     Dates: start: 20090709, end: 20100531
  19. RISPERIDONE [Suspect]
     Route: 048
     Dates: start: 20090115, end: 20090401
  20. LONASEN [Suspect]
     Route: 048
  21. ZOTEPINE [Suspect]
     Indication: SCHIZOPHRENIA
     Route: 048
     Dates: start: 20110901, end: 20110905
  22. ZOTEPINE [Suspect]
     Route: 048
     Dates: start: 20110616, end: 20110831
  23. ZOTEPINE [Suspect]
     Route: 048
     Dates: start: 20081009, end: 20081203
  24. RISPERIDONE [Suspect]
     Indication: SCHIZOPHRENIA
     Route: 048
     Dates: start: 20021210, end: 20030106
  25. RISPERIDONE [Suspect]
     Route: 048
     Dates: start: 20090514, end: 20090527
  26. LONASEN [Suspect]
     Indication: SCHIZOPHRENIA
     Route: 048
     Dates: end: 20110905
  27. VALPROATE SODIUM [Concomitant]
     Route: 048
     Dates: start: 20080724, end: 20080806
  28. LITHIUM CARBONATE [Concomitant]
     Route: 048
     Dates: start: 20090824, end: 20091021
  29. RISPERIDONE [Suspect]
     Route: 048
     Dates: start: 19990927, end: 19991003
  30. RISPERIDONE [Suspect]
     Route: 048
     Dates: start: 20000803, end: 20020107
  31. LITHIUM CARBONATE [Concomitant]
     Route: 048
  32. PURSENNID [Concomitant]
     Route: 048
     Dates: start: 20080710, end: 20090513
  33. PURSENNID [Concomitant]
     Route: 048
     Dates: start: 20080626, end: 20080709
  34. ACTOS [Concomitant]
     Route: 048
  35. EVAMYL [Concomitant]
     Indication: INSOMNIA
     Route: 048
     Dates: start: 20110117, end: 20110905
  36. PURSENNID [Concomitant]
     Indication: CONSTIPATION
     Route: 048
     Dates: start: 20090514, end: 20110905
  37. RISPERDAL CONSTA [Suspect]
     Route: 030
     Dates: start: 20110630, end: 20110811
  38. RISPERIDONE [Suspect]
     Route: 048
     Dates: start: 20100601, end: 20110905
  39. LITHIUM CARBONATE [Concomitant]
     Route: 048
     Dates: start: 20091022, end: 20110905
  40. ACTOS [Concomitant]
     Indication: DIABETES MELLITUS
     Route: 048
     Dates: start: 20070215, end: 20110905

REACTIONS (7)
  - CARDIO-RESPIRATORY ARREST [None]
  - FOAMING AT MOUTH [None]
  - ACUTE MYOCARDIAL INFARCTION [None]
  - FALL [None]
  - TREATMENT NONCOMPLIANCE [None]
  - AGGRESSION [None]
  - ALCOHOL USE [None]
